FAERS Safety Report 4359379-1 (Version None)
Quarter: 2004Q2

REPORT INFORMATION
  Report Type: 
  Country: None (occurrence: None)
  Receive Date: 20040518
  Receipt Date: 20040510
  Transmission Date: 20050107
  Serious: Yes (Hospitalization)
  Sender: FDA-Public Use
  Company Number: CA-JNJFOC-20040502224

PATIENT
  Age: 72 Year
  Sex: Male

DRUGS (7)
  1. REMICADE [Suspect]
     Route: 042
  2. REMICADE [Suspect]
     Indication: RHEUMATOID ARTHRITIS
     Route: 042
  3. FOSAMAX [Concomitant]
  4. PREDNISONE [Concomitant]
  5. CELEBREX [Concomitant]
  6. PLAQUENIL [Concomitant]
  7. MINOCYCLINE HCL [Concomitant]

REACTIONS (2)
  - EJECTION FRACTION DECREASED [None]
  - VENTRICULAR TACHYCARDIA [None]
